FAERS Safety Report 7279351-1 (Version None)
Quarter: 2011Q1

REPORT INFORMATION
  Report Type: 
  Country: None (occurrence: None)
  Receive Date: 20110207
  Receipt Date: 20110203
  Transmission Date: 20110831
  Serious: Yes (Hospitalization)
  Sender: FDA-Public Use
  Company Number: IT-BRISTOL-MYERS SQUIBB COMPANY-15479934

PATIENT
  Age: 79 Year
  Sex: Male

DRUGS (3)
  1. CRESTOR [Concomitant]
     Dates: start: 20000101, end: 20100609
  2. COUMADIN [Suspect]
     Indication: CARDIAC VALVE PROSTHESIS USER
     Dates: start: 19991027, end: 20100609
  3. ATENOLOL [Concomitant]
     Dates: start: 20000101, end: 20100609

REACTIONS (2)
  - ARTERIAL THROMBOSIS [None]
  - TRANSIENT ISCHAEMIC ATTACK [None]
